FAERS Safety Report 13276680 (Version 1)
Quarter: 2017Q1

REPORT INFORMATION
  Report Type: Spontaneous
  Country: US (occurrence: US)
  Receive Date: 20170228
  Receipt Date: 20170228
  Transmission Date: 20170428
  Serious: Yes (Other)
  Sender: FDA-Public Use
  Company Number: US-UNITED THERAPEUTICS-UNT-2017-002614

PATIENT
  Age: 68 Year
  Sex: Female
  Weight: 65.31 kg

DRUGS (2)
  1. ADEMPAS [Concomitant]
     Active Substance: RIOCIGUAT
     Indication: PRODUCT USED FOR UNKNOWN INDICATION
  2. REMODULIN [Suspect]
     Active Substance: TREPROSTINIL
     Indication: PULMONARY ARTERIAL HYPERTENSION
     Dosage: 0.069 ?G/KG, CONTINUING
     Route: 041
     Dates: start: 20130509

REACTIONS (4)
  - Device use error [Unknown]
  - Diarrhoea [Unknown]
  - Computerised tomogram [Unknown]
  - Malaise [Unknown]

NARRATIVE: CASE EVENT DATE: 201702
